FAERS Safety Report 7790472-7 (Version None)
Quarter: 2011Q3

REPORT INFORMATION
  Report Type: 
  Country: None (occurrence: None)
  Receive Date: 20110930
  Receipt Date: 20110921
  Transmission Date: 20111222
  Serious: Yes (Hospitalization)
  Sender: FDA-Public Use
  Company Number: PHHY2011US83919

PATIENT
  Age: 54 Year
  Sex: Female

DRUGS (7)
  1. ANTIHYPERTENSIVE DRUGS [Suspect]
     Dosage: UNK UKN, UNK
  2. PREDNISONE [Suspect]
     Indication: IMMUNOSUPPRESSION
     Dosage: 5 MG, QD
  3. SULFAMETHOXAZOLE AND TRIMETHOPRIM [Suspect]
     Dosage: 80/400 MG BID
  4. SULFAMETHOXAZOLE AND TRIMETHOPRIM [Suspect]
     Indication: PROPHYLAXIS
     Dosage: 300 MG, UNK
     Route: 042
  5. GANCICLOVIR [Suspect]
     Indication: PROPHYLAXIS
     Dosage: UNK UKN, UNK
  6. MYCOPHENOLATE MOFETIL [Suspect]
     Indication: IMMUNOSUPPRESSION
     Dosage: 500 MG, TID
  7. TACROLIMUS [Suspect]
     Indication: IMMUNOSUPPRESSION
     Dosage: 20MG EVERY MORNING, 15MG EVERY NIGHT

REACTIONS (15)
  - LUNG INFILTRATION [None]
  - HEADACHE [None]
  - BRAIN ABSCESS [None]
  - VOMITING [None]
  - VISUAL FIELD DEFECT [None]
  - HEMIANOPIA [None]
  - LEUKOCYTOSIS [None]
  - NAUSEA [None]
  - COUGH [None]
  - CHEST PAIN [None]
  - GRAND MAL CONVULSION [None]
  - CENTRAL NERVOUS SYSTEM LESION [None]
  - NOCARDIOSIS [None]
  - SKIN LESION [None]
  - ZYGOMYCOSIS [None]
